FAERS Safety Report 5625097-2 (Version None)
Quarter: 2008Q1

REPORT INFORMATION
  Report Type: 
  Country: None (occurrence: None)
  Receive Date: 20080213
  Receipt Date: 20080117
  Transmission Date: 20080703
  Serious: No
  Sender: FDA-Public Use
  Company Number: US-BOEHRINGER INGELHEIM GMBH, GERMANY-2008-BP-00873BP

PATIENT
  Age: 83 Year
  Sex: Female

DRUGS (5)
  1. ZANTAC 150 [Suspect]
     Indication: GASTROOESOPHAGEAL REFLUX DISEASE
     Route: 048
     Dates: start: 20071201
  2. NORVASC [Concomitant]
  3. COZAAR [Concomitant]
  4. ZOCOR [Concomitant]
  5. ASPIRIN [Concomitant]

REACTIONS (1)
  - CONSTIPATION [None]
